FAERS Safety Report 5755513-7 (Version None)
Quarter: 2008Q2

REPORT INFORMATION
  Report Type: 
  Country: None (occurrence: None)
  Receive Date: 20080530
  Receipt Date: 20080530
  Transmission Date: 20081010
  Serious: Yes (Hospitalization)
  Sender: FDA-Public Use
  Company Number: None

PATIENT
  Age: 75 Year
  Sex: Female
  Weight: 74.3899 kg

DRUGS (2)
  1. PRAVACHOL [Suspect]
     Indication: BLOOD CHOLESTEROL INCREASED
     Dosage: ONE A DAY DAILY PO
     Route: 048
     Dates: start: 20070901, end: 20080522
  2. PRAVACHOL [Suspect]
     Indication: LOW DENSITY LIPOPROTEIN INCREASED
     Dosage: ONE A DAY DAILY PO
     Route: 048
     Dates: start: 20070901, end: 20080522

REACTIONS (8)
  - AGITATION [None]
  - CEREBROVASCULAR ACCIDENT [None]
  - CONFUSIONAL STATE [None]
  - GLOBAL AMNESIA [None]
  - HEADACHE [None]
  - MUSCULAR WEAKNESS [None]
  - PUPILS UNEQUAL [None]
  - REPETITIVE SPEECH [None]
